FAERS Safety Report 8078114-7 (Version None)
Quarter: 2012Q1

REPORT INFORMATION
  Report Type: 
  Country: None (occurrence: None)
  Receive Date: 20120127
  Receipt Date: 20110302
  Transmission Date: 20120608
  Serious: No
  Sender: FDA-Public Use
  Company Number: US-ABBOTT-10P-163-0687227-00

PATIENT
  Sex: Female
  Weight: 63.56 kg

DRUGS (8)
  1. HUMIRA [Suspect]
     Indication: RHEUMATOID ARTHRITIS
     Route: 058
     Dates: start: 20090810
  2. PREDNISONE [Concomitant]
     Dates: start: 20101101
  3. MOTRIN [Concomitant]
     Indication: PRODUCT USED FOR UNKNOWN INDICATION
     Dosage: AT BEDTIME
  4. PREDNISONE [Concomitant]
     Indication: RHEUMATOID ARTHRITIS
     Dates: end: 20101001
  5. HUMIRA [Suspect]
     Dates: start: 20110214
  6. SULFASALAZINE [Concomitant]
  7. HUMIRA [Suspect]
  8. SULFASALAZINE [Concomitant]
     Indication: RHEUMATOID ARTHRITIS
     Dosage: 2 IN THE MORNING AND 2 AT NIGHT.
     Dates: end: 20101101

REACTIONS (11)
  - ORAL MUCOSAL ERUPTION [None]
  - MYALGIA [None]
  - JOINT STIFFNESS [None]
  - RASH [None]
  - MUSCULOSKELETAL STIFFNESS [None]
  - PAIN IN EXTREMITY [None]
  - RASH MACULAR [None]
  - OROPHARYNGEAL BLISTERING [None]
  - DRUG INEFFECTIVE [None]
  - RASH PRURITIC [None]
  - ARTHRALGIA [None]
